FAERS Safety Report 20578157 (Version 1)
Quarter: 2022Q1

REPORT INFORMATION
  Report Type: Spontaneous
  Country: US (occurrence: None)
  Receive Date: 20220310
  Receipt Date: 20220310
  Transmission Date: 20220424
  Serious: No
  Sender: FDA-Public Use
  Company Number: None

PATIENT
  Age: 88 Year
  Sex: Female

DRUGS (1)
  1. ERLOTINIB HYDROCHLORIDE [Suspect]
     Active Substance: ERLOTINIB HYDROCHLORIDE
     Indication: Lung neoplasm malignant
     Dosage: 75MG ONCE DAILY ORAL?
     Route: 048
     Dates: start: 20170510

REACTIONS (3)
  - Gallbladder operation [None]
  - Fall [None]
  - Injury [None]

NARRATIVE: CASE EVENT DATE: 20220302
